FAERS Safety Report 10525817 (Version 2)
Quarter: 2015Q1

REPORT INFORMATION
  Report Type: Report from Study
  Country: US (occurrence: US)
  Receive Date: 20141017
  Receipt Date: 20150128
  Transmission Date: 20150720
  Serious: Yes (Death, Other)
  Sender: FDA-Public Use
  Company Number: PHEH2014US020606

PATIENT
  Sex: Female

DRUGS (1)
  1. AFINITOR [Suspect]
     Active Substance: EVEROLIMUS
     Indication: RENAL CANCER
     Dosage: 10 MG, QD
     Route: 048

REACTIONS (5)
  - Death [Fatal]
  - Metastases to central nervous system [Unknown]
  - Second primary malignancy [Unknown]
  - Metastases to lymph nodes [Unknown]
  - Metastases to lung [Unknown]
